FAERS Safety Report 14638689 (Version 1)
Quarter: 2018Q1

REPORT INFORMATION
  Report Type: Other
  Country: TW (occurrence: TW)
  Receive Date: 20180315
  Receipt Date: 20180315
  Transmission Date: 20180509
  Serious: Yes (Other)
  Sender: FDA-Public Use
  Company Number: TW-CIPHER-2018-TW-000004

PATIENT
  Age: 53 Year
  Sex: Male

DRUGS (1)
  1. FENOFIBRATE. [Suspect]
     Active Substance: FENOFIBRATE
     Indication: PRODUCT USED FOR UNKNOWN INDICATION

REACTIONS (3)
  - Rash pruritic [Recovered/Resolved]
  - Photosensitivity reaction [Unknown]
  - Rash papular [Recovered/Resolved]
